FAERS Safety Report 8063489-5 (Version None)
Quarter: 2012Q1

REPORT INFORMATION
  Report Type: 
  Country: None (occurrence: None)
  Receive Date: 20120123
  Receipt Date: 20120117
  Transmission Date: 20120608
  Serious: Yes (Hospitalization, Other)
  Sender: FDA-Public Use
  Company Number: PHHY2011US60922

PATIENT
  Sex: Female

DRUGS (6)
  1. GILENYA [Suspect]
     Dosage: 0.5 MG, QOD
     Route: 048
  2. SYNTHROID [Concomitant]
  3. ALTEVIA [Concomitant]
     Indication: OSTEOPOROSIS
     Dosage: 35 MG, QW
  4. GILENYA [Suspect]
     Dosage: 0.5 MG, QD
     Route: 048
     Dates: start: 20120112
  5. FOSAMAX [Concomitant]
  6. GILENYA [Suspect]
     Indication: MULTIPLE SCLEROSIS
     Dosage: 0.5 MG, QD
     Route: 048
     Dates: start: 20110707

REACTIONS (12)
  - NAUSEA [None]
  - FATIGUE [None]
  - APPETITE DISORDER [None]
  - COUGH [None]
  - ASTHENIA [None]
  - INSOMNIA [None]
  - HEADACHE [None]
  - ABDOMINAL PAIN [None]
  - ABDOMINAL DISTENSION [None]
  - BLOOD PRESSURE DECREASED [None]
  - FEELING OF BODY TEMPERATURE CHANGE [None]
  - INAPPROPRIATE SCHEDULE OF DRUG ADMINISTRATION [None]
